FAERS Safety Report 11039585 (Version 2)
Quarter: 2015Q2

REPORT INFORMATION
  Report Type: Spontaneous
  Country: US (occurrence: US)
  Receive Date: 20150416
  Receipt Date: 20150422
  Transmission Date: 20150821
  Serious: No
  Sender: FDA-Public Use
  Company Number: US-SHIRE-US201503335

PATIENT
  Age: 6 Year
  Sex: Male
  Weight: 26.3 kg

DRUGS (2)
  1. INTUNIV [Suspect]
     Active Substance: GUANFACINE HYDROCHLORIDE
     Dosage: 2 MG, 1X/DAY:QD, DAILY AT 8PM
     Route: 048
     Dates: start: 2015
  2. INTUNIV [Suspect]
     Active Substance: GUANFACINE HYDROCHLORIDE
     Indication: ATTENTION DEFICIT/HYPERACTIVITY DISORDER
     Dosage: 1 MG, 1X/DAY:QD, DAILY AT 8PM
     Route: 048
     Dates: start: 201411, end: 2015

REACTIONS (11)
  - Drug ineffective [Recovered/Resolved]
  - Attention-seeking behaviour [Not Recovered/Not Resolved]
  - Restlessness [Not Recovered/Not Resolved]
  - Drug effect variable [Unknown]
  - Nightmare [Not Recovered/Not Resolved]
  - Anger [Not Recovered/Not Resolved]
  - Impulsive behaviour [Not Recovered/Not Resolved]
  - Mood altered [Not Recovered/Not Resolved]
  - Drug dose omission [Recovered/Resolved]
  - Middle insomnia [Not Recovered/Not Resolved]
  - Gastroenteritis viral [Recovered/Resolved]

NARRATIVE: CASE EVENT DATE: 2014
